FAERS Safety Report 5249855-1 (Version None)
Quarter: 2007Q1

REPORT INFORMATION
  Report Type: 
  Country: None (occurrence: None)
  Receive Date: 20070228
  Receipt Date: 20070219
  Transmission Date: 20070707
  Serious: Yes (Hospitalization)
  Sender: FDA-Public Use
  Company Number: FR-GLAXOSMITHKLINE-B0459049A

PATIENT
  Age: 69 Year
  Sex: Male

DRUGS (3)
  1. ARIXTRA [Suspect]
     Indication: CARDIAC VALVE PROSTHESIS USER
     Dosage: 7.5MG SEE DOSAGE TEXT
     Route: 058
     Dates: start: 20070128, end: 20070130
  2. CALCIPARINE [Concomitant]
     Indication: CARDIAC VALVE PROSTHESIS USER
     Dates: start: 20070126, end: 20070127
  3. ACUPAN [Concomitant]

REACTIONS (4)
  - BRONCHIAL HAEMORRHAGE [None]
  - HAEMOPTYSIS [None]
  - OVERDOSE [None]
  - RENAL IMPAIRMENT [None]
